FAERS Safety Report 6752906-6 (Version None)
Quarter: 2010Q2

REPORT INFORMATION
  Report Type: 
  Country: None (occurrence: None)
  Receive Date: 20100602
  Receipt Date: 20100602
  Transmission Date: 20101027
  Serious: Yes (Life-Threatening, Hospitalization, Disabling, Other)
  Sender: FDA-Public Use
  Company Number: None

PATIENT
  Sex: Female
  Weight: 82.3 kg

DRUGS (3)
  1. VIVELLE-DOT [Suspect]
     Indication: HOT FLUSH
     Dosage: 0.075CM CHANGE EVERY 4 D PUT ON ABDOMEN
     Dates: start: 20090801, end: 20100315
  2. VIVELLE-DOT [Suspect]
     Indication: NIGHT SWEATS
     Dosage: 0.075CM CHANGE EVERY 4 D PUT ON ABDOMEN
     Dates: start: 20090801, end: 20100315
  3. VIVELLE-DOT [Suspect]
     Dosage: WAS SUPPOSED TO BE 0.005CM CHANGE EVERY 4 D PUT ON ABDOMEN

REACTIONS (3)
  - DRUG PRESCRIBING ERROR [None]
  - INCORRECT DOSE ADMINISTERED [None]
  - UTERINE CANCER [None]
